FAERS Safety Report 7793090-X (Version None)
Quarter: 2011Q3

REPORT INFORMATION
  Report Type: 
  Country: None (occurrence: None)
  Receive Date: 20110930
  Receipt Date: 20110930
  Transmission Date: 20111222
  Serious: Yes (Life-Threatening, Disabling, Other)
  Sender: FDA-Public Use
  Company Number: None

PATIENT
  Age: 76 Year
  Sex: Male
  Weight: 81.6475 kg

DRUGS (5)
  1. XOPENEX [Suspect]
  2. XOPENEX [Suspect]
     Indication: ASTHMA
     Dosage: 1 VIAL TREATMENT 6 HOURS BREATHING
     Dates: start: 20070107
  3. XOPENEX [Suspect]
  4. XOPENEX [Suspect]
  5. XOPENEX [Suspect]

REACTIONS (3)
  - PRODUCT DEPOSIT [None]
  - PRODUCT TASTE ABNORMAL [None]
  - PRODUCT QUALITY ISSUE [None]
